FAERS Safety Report 5465994-4 (Version None)
Quarter: 2007Q3

REPORT INFORMATION
  Report Type: 
  Country: None (occurrence: None)
  Receive Date: 20070924
  Receipt Date: 20070918
  Transmission Date: 20080115
  Serious: Yes (Other)
  Sender: FDA-Public Use
  Company Number: US-BOEHRINGER INGELHEIM PHARMACEUTICALS, INC.-2007-DE-05610GD

PATIENT

DRUGS (3)
  1. CLONIDINE [Suspect]
     Indication: EPIDURAL ANAESTHESIA
     Route: 064
  2. BUPIVACAINE [Suspect]
     Indication: EPIDURAL ANAESTHESIA
     Route: 064
  3. FENTANYL [Suspect]
     Indication: EPIDURAL ANAESTHESIA
     Route: 064

REACTIONS (1)
  - APGAR SCORE LOW [None]
